FAERS Safety Report 10959751 (Version 2)
Quarter: 2015Q2

REPORT INFORMATION
  Report Type: Spontaneous
  Country: US (occurrence: US)
  Receive Date: 20150327
  Receipt Date: 20150524
  Transmission Date: 20150821
  Serious: No
  Sender: FDA-Public Use
  Company Number: US-JNJFOC-20140714489

PATIENT
  Sex: Female
  Weight: 46.27 kg

DRUGS (8)
  1. DURAGESIC [Suspect]
     Active Substance: FENTANYL
     Indication: SPINAL FRACTURE
     Route: 062
  2. DURAGESIC [Suspect]
     Active Substance: FENTANYL
     Indication: RIB FRACTURE
     Route: 062
  3. DURAGESIC [Suspect]
     Active Substance: FENTANYL
     Indication: SPINAL FRACTURE
     Route: 062
  4. DURAGESIC [Suspect]
     Active Substance: FENTANYL
     Indication: RIB FRACTURE
     Route: 062
  5. DURAGESIC [Suspect]
     Active Substance: FENTANYL
     Indication: FRACTURE
     Route: 062
  6. DURAGESIC [Suspect]
     Active Substance: FENTANYL
     Indication: FRACTURE
     Route: 062
  7. VENTOLIN [Concomitant]
     Active Substance: ALBUTEROL SULFATE
     Indication: ASTHMA
     Route: 055
  8. CARTIA XT [Concomitant]
     Active Substance: DILTIAZEM HYDROCHLORIDE
     Indication: CARDIAC DISORDER
     Route: 048
     Dates: start: 1992

REACTIONS (1)
  - Thinking abnormal [Unknown]
